FAERS Safety Report 5815716-X (Version None)
Quarter: 2008Q3

REPORT INFORMATION
  Report Type: 
  Country: None (occurrence: None)
  Receive Date: 20080721
  Receipt Date: 20080716
  Transmission Date: 20090109
  Serious: Yes (Hospitalization)
  Sender: FDA-Public Use
  Company Number: FR-BRISTOL-MYERS SQUIBB COMPANY-14267199

PATIENT
  Age: 75 Year
  Sex: Male

DRUGS (6)
  1. HYDREA [Suspect]
     Indication: POLYCYTHAEMIA
     Dates: start: 20071201, end: 20080101
  2. HYDREA [Suspect]
     Indication: POLYCYTHAEMIA VERA
     Dates: start: 20071201, end: 20080101
  3. TAREG [Concomitant]
  4. XATRAL [Concomitant]
  5. NEURONTIN [Concomitant]
  6. ALLOPURINOL [Concomitant]

REACTIONS (3)
  - PURPURA [None]
  - PYREXIA [None]
  - THROMBOCYTOPENIA [None]
